FAERS Safety Report 4303452-0 (Version None)
Quarter: 2004Q1

REPORT INFORMATION
  Report Type: 
  Country: None (occurrence: None)
  Receive Date: 20040223
  Receipt Date: 20040216
  Transmission Date: 20041129
  Serious: Yes (Other)
  Sender: FDA-Public Use
  Company Number: 2003-12-1055

PATIENT
  Age: 63 Year
  Sex: Male
  Weight: 54 kg

DRUGS (4)
  1. INTRON A [Suspect]
     Indication: MALIGNANT MELANOMA
     Dosage: 6 MU TIW
     Dates: start: 20030922, end: 20040112
  2. RADIATION THERAPY NO DOSE FORM [Suspect]
     Indication: BRAIN NEOPLASM
     Dosage: X-RAY THERAPY
  3. MORPHINE [Concomitant]
  4. ACETAMINOPHEN [Concomitant]

REACTIONS (8)
  - ANGER [None]
  - ASTHENIA [None]
  - DEPRESSION [None]
  - EMOTIONAL DISORDER [None]
  - HEADACHE [None]
  - INSOMNIA [None]
  - SENSATION OF BLOCK IN EAR [None]
  - WEIGHT DECREASED [None]
